FAERS Safety Report 7576315-5 (Version None)
Quarter: 2011Q2

REPORT INFORMATION
  Report Type: 
  Country: None (occurrence: None)
  Receive Date: 20110623
  Receipt Date: 20110623
  Transmission Date: 20111010
  Serious: No
  Sender: FDA-Public Use
  Company Number: None

PATIENT
  Age: 45 Year
  Sex: Female

DRUGS (1)
  1. BACTRIM [Suspect]
     Dates: start: 20090127, end: 20090224

REACTIONS (8)
  - LIVER DISORDER [None]
  - INFLUENZA LIKE ILLNESS [None]
  - ASPARTATE AMINOTRANSFERASE INCREASED [None]
  - SUBCUTANEOUS ABSCESS [None]
  - RASH [None]
  - OVARIAN CYST [None]
  - ALANINE AMINOTRANSFERASE INCREASED [None]
  - BLOOD ALKALINE PHOSPHATASE INCREASED [None]
